FAERS Safety Report 8223611-4 (Version None)
Quarter: 2012Q1

REPORT INFORMATION
  Report Type: 
  Country: None (occurrence: None)
  Receive Date: 20120321
  Receipt Date: 20120309
  Transmission Date: 20120608
  Serious: Yes (Other)
  Sender: FDA-Public Use
  Company Number: US-BAYER-2012-025446

PATIENT
  Sex: Female

DRUGS (1)
  1. YAZ [Suspect]
     Dosage: UNK
     Dates: start: 20090301

REACTIONS (6)
  - CHOLELITHIASIS [None]
  - DIZZINESS [None]
  - WEIGHT DECREASED [None]
  - DYSPNOEA [None]
  - PALPITATIONS [None]
  - ABDOMINAL PAIN [None]
